FAERS Safety Report 7644000-7 (Version None)
Quarter: 2011Q3

REPORT INFORMATION
  Report Type: 
  Country: None (occurrence: None)
  Receive Date: 20110729
  Receipt Date: 20110216
  Transmission Date: 20111222
  Serious: No
  Sender: FDA-Public Use
  Company Number: US-GLAXOSMITHKLINE-A0913979A

PATIENT
  Sex: Female

DRUGS (2)
  1. STEROID [Concomitant]
  2. ZANTAC [Suspect]
     Indication: GASTROOESOPHAGEAL REFLUX DISEASE
     Dosage: 1TSP TWICE PER DAY
     Route: 048
     Dates: start: 20110102

REACTIONS (4)
  - DRUG DISPENSING ERROR [None]
  - OVERDOSE [None]
  - CRYING [None]
  - ANGER [None]
